FAERS Safety Report 19674026 (Version 1)
Quarter: 2021Q3

REPORT INFORMATION
  Report Type: Spontaneous
  Country: US (occurrence: US)
  Receive Date: 20210716
  Receipt Date: 20210716
  Transmission Date: 20211014
  Serious: No
  Sender: FDA-Public Use
  Company Number: None

PATIENT
  Age: 84 Year
  Sex: Male
  Weight: 88.45 kg

DRUGS (13)
  1. VASCEPA [Concomitant]
     Active Substance: ICOSAPENT ETHYL
  2. JANUVIA [Suspect]
     Active Substance: SITAGLIPTIN PHOSPHATE
     Indication: GLUCOSE TOLERANCE IMPAIRED
     Dosage: ?          QUANTITY:1 DF DOSAGE FORM;?
     Route: 048
  3. VITAMIN B12 [Concomitant]
     Active Substance: CYANOCOBALAMIN
  4. RANOLAZINE. [Concomitant]
     Active Substance: RANOLAZINE
  5. METOPROLOL. [Concomitant]
     Active Substance: METOPROLOL
  6. ESOMEPRAZOLE MAG [Suspect]
     Active Substance: ESOMEPRAZOLE MAGNESIUM
     Dosage: ?          QUANTITY:1 DF DOSAGE FORM;?
     Route: 048
  7. LOSARTAN. [Concomitant]
     Active Substance: LOSARTAN
  8. VITAMIN D3 [Concomitant]
     Active Substance: CHOLECALCIFEROL
  9. SYNTHROID [Concomitant]
     Active Substance: LEVOTHYROXINE SODIUM
  10. CLOPIDOGREL [Concomitant]
     Active Substance: CLOPIDOGREL BISULFATE
  11. ATORVASTATIN [Concomitant]
     Active Substance: ATORVASTATIN
  12. ESCITALOPRAM [Concomitant]
     Active Substance: ESCITALOPRAM OXALATE
  13. VITAMIN E [Concomitant]
     Active Substance: .ALPHA.-TOCOPHEROL

REACTIONS (1)
  - Tremor [None]

NARRATIVE: CASE EVENT DATE: 20210510
